FAERS Safety Report 18737934 (Version 1)
Quarter: 2021Q1

REPORT INFORMATION
  Report Type: Report from Study
  Country: US (occurrence: US)
  Receive Date: 20210113
  Receipt Date: 20210113
  Transmission Date: 20210419
  Serious: No
  Sender: FDA-Public Use
  Company Number: US-VANDA PHARMACEUTICALS, INC-2020TASUS004133

PATIENT
  Sex: Male

DRUGS (1)
  1. HETLIOZ [Suspect]
     Active Substance: TASIMELTEON
     Indication: SLEEP DISORDER DUE TO GENERAL MEDICAL CONDITION, INSOMNIA TYPE
     Dosage: 20 MG, QD, 1H BEFORE BEDTIME

REACTIONS (4)
  - Hypersomnia [Unknown]
  - Off label use [Unknown]
  - Lethargy [Unknown]
  - Product dose omission issue [Unknown]
